FAERS Safety Report 15706622 (Version 1)
Quarter: 2018Q4

REPORT INFORMATION
  Report Type: Spontaneous
  Country: IT (occurrence: IT)
  Receive Date: 20181210
  Receipt Date: 20181210
  Transmission Date: 20190205
  Serious: Yes (Other)
  Sender: FDA-Public Use
  Company Number: PHHY2018IT175010

PATIENT
  Age: 10 Year
  Sex: Female

DRUGS (1)
  1. ACZ885 [Suspect]
     Active Substance: CANAKINUMAB
     Indication: PERICARDITIS
     Dosage: 2.5 MG/KG, UNK
     Route: 065

REACTIONS (4)
  - Pericarditis [Recovered/Resolved]
  - Product use in unapproved indication [Unknown]
  - Treatment failure [Unknown]
  - Disease recurrence [Recovered/Resolved]
